FAERS Safety Report 17913407 (Version 1)
Quarter: 2020Q2

REPORT INFORMATION
  Report Type: Spontaneous
  Country: US (occurrence: US)
  Receive Date: 20200618
  Receipt Date: 20200618
  Transmission Date: 20200714
  Serious: No
  Sender: FDA-Public Use
  Company Number: US-THERAPEUTICSMD-2020TMD02040

PATIENT
  Age: 59 Year
  Sex: Female
  Weight: 63.49 kg

DRUGS (6)
  1. UNSPECIFIED VITAMINS [Concomitant]
     Active Substance: VITAMINS
     Dosage: UNK
  2. IMVEXXY [Suspect]
     Active Substance: ESTRADIOL
     Indication: VULVOVAGINAL PRURITUS
  3. UNSPECIFIED SUPPLEMENTS [Concomitant]
     Dosage: UNK
  4. BIOIDENTICAL ESTROGEN [Concomitant]
     Dosage: UNK
     Route: 060
  5. IMVEXXY [Suspect]
     Active Substance: ESTRADIOL
     Indication: VULVOVAGINAL DISCOMFORT
  6. IMVEXXY [Suspect]
     Active Substance: ESTRADIOL
     Indication: VULVOVAGINAL DRYNESS
     Dosage: 10 ?G, 1X/DAY BEFORE BED
     Route: 067
     Dates: start: 20200427

REACTIONS (5)
  - Vaginal discharge [Not Recovered/Not Resolved]
  - Product solubility abnormal [Not Recovered/Not Resolved]
  - Off label use [Not Recovered/Not Resolved]
  - Contraindicated product prescribed [Not Recovered/Not Resolved]
  - Product residue present [Not Recovered/Not Resolved]

NARRATIVE: CASE EVENT DATE: 20200427
